FAERS Safety Report 25469868 (Version 1)
Quarter: 2025Q2

REPORT INFORMATION
  Report Type: Spontaneous
  Country: NZ (occurrence: NZ)
  Receive Date: 20250623
  Receipt Date: 20250623
  Transmission Date: 20250717
  Serious: Yes (Hospitalization, Other)
  Sender: BRISTOL-MYERS SQUIBB COMPANY
  Company Number: NZ-BRISTOL-MYERS SQUIBB COMPANY-2025-085448

PATIENT

DRUGS (4)
  1. OPDIVO [Suspect]
     Active Substance: NIVOLUMAB
     Indication: Renal cell carcinoma
  2. OPDIVO [Suspect]
     Active Substance: NIVOLUMAB
     Dates: start: 20231208
  3. YERVOY [Suspect]
     Active Substance: IPILIMUMAB
     Indication: Renal cell carcinoma
  4. RIVAROXABAN [Suspect]
     Active Substance: RIVAROXABAN
     Indication: Product used for unknown indication

REACTIONS (11)
  - Vertebrobasilar stroke [Unknown]
  - Ejection fraction decreased [Unknown]
  - Cerebrovascular accident [Unknown]
  - Haemoglobin decreased [Unknown]
  - Barrett^s oesophagus [Unknown]
  - Cellulitis [Unknown]
  - Acute kidney injury [Unknown]
  - Extremity necrosis [Unknown]
  - Peripheral ischaemia [Unknown]
  - Microembolism [Unknown]
  - Off label use [Unknown]

NARRATIVE: CASE EVENT DATE: 20240212
